APPROVED DRUG PRODUCT: NOREPINEPHRINE BITARTRATE IN 0.9% SODIUM CHLORIDE
Active Ingredient: NOREPINEPHRINE BITARTRATE
Strength: EQ 8MG BASE/250ML (EQ 32MCG BASE/ML)
Dosage Form/Route: SOLUTION;INTRAVENOUS
Application: N215700 | Product #002
Applicant: INFORLIFE SA
Approved: Sep 15, 2022 | RLD: Yes | RS: Yes | Type: RX

PATENTS:
Patent RE49422 | Expires: Feb 26, 2035
Patent 10888534 | Expires: Apr 26, 2039